FAERS Safety Report 11497501 (Version 1)
Quarter: 2015Q3

REPORT INFORMATION
  Report Type: Spontaneous
  Country: US (occurrence: US)
  Receive Date: 20150911
  Receipt Date: 20150911
  Transmission Date: 20151125
  Serious: Yes (Other)
  Sender: FDA-Public Use
  Company Number: US-ASTRAZENECA-2015SE86931

PATIENT
  Age: 80 Year
  Sex: Female
  Weight: 72.6 kg

DRUGS (13)
  1. NIFEDIPINE. [Concomitant]
     Active Substance: NIFEDIPINE
     Route: 048
  2. SPIRIVA [Concomitant]
     Active Substance: TIOTROPIUM BROMIDE MONOHYDRATE
     Indication: CHRONIC OBSTRUCTIVE PULMONARY DISEASE
     Dosage: DAILY
     Route: 055
  3. ALPRAZALAM [Concomitant]
     Indication: ANXIETY
     Route: 048
     Dates: start: 2011
  4. PREDNISONE. [Concomitant]
     Active Substance: PREDNISONE
     Indication: INFLAMMATION
     Route: 048
     Dates: start: 201506
  5. LOSARTAN. [Concomitant]
     Active Substance: LOSARTAN
     Indication: BLOOD PRESSURE ABNORMAL
     Route: 048
  6. LEVOBUTEROL [Concomitant]
     Indication: CHRONIC OBSTRUCTIVE PULMONARY DISEASE
     Dosage: AS REQUIRED
     Route: 055
  7. TYLENOL WITH CODEINE [Concomitant]
     Active Substance: ACETAMINOPHEN\CODEINE PHOSPHATE
     Indication: PAIN
     Route: 048
     Dates: start: 201506
  8. SYMBICORT [Suspect]
     Active Substance: BUDESONIDE\FORMOTEROL FUMARATE DIHYDRATE
     Indication: CHRONIC OBSTRUCTIVE PULMONARY DISEASE
     Dosage: 160/4.5 MCG 120 INHALATIONS, TWO TIMES A DAY
     Route: 055
  9. PANTOPRAZOLE [Concomitant]
     Active Substance: PANTOPRAZOLE SODIUM
     Indication: GASTROOESOPHAGEAL REFLUX DISEASE
     Route: 048
     Dates: start: 201507
  10. CALCIUM WITH VIT D [Concomitant]
     Route: 048
  11. ZOPANEX [Concomitant]
     Indication: CHRONIC OBSTRUCTIVE PULMONARY DISEASE
     Route: 055
  12. CARBADOPA LEVADOPA [Concomitant]
     Indication: RESTLESS LEGS SYNDROME
     Dosage: AT NIGHT
     Route: 048
     Dates: start: 2013
  13. SYNTHROID [Concomitant]
     Active Substance: LEVOTHYROXINE SODIUM
     Indication: THYROID DISORDER
     Route: 048

REACTIONS (4)
  - Lung neoplasm malignant [Unknown]
  - Drug dose omission [Unknown]
  - Dyspnoea [Unknown]
  - Product quality issue [Unknown]

NARRATIVE: CASE EVENT DATE: 2013
